FAERS Safety Report 15231499 (Version 1)
Quarter: 2018Q3

REPORT INFORMATION
  Report Type: Spontaneous
  Country: US (occurrence: US)
  Receive Date: 20180802
  Receipt Date: 20180802
  Transmission Date: 20181010
  Serious: Yes (Death, Other)
  Sender: FDA-Public Use
  Company Number: PHHY2018US059900

PATIENT

DRUGS (1)
  1. ELTROMBOPAG [Suspect]
     Active Substance: ELTROMBOPAG
     Indication: IMMUNE THROMBOCYTOPENIC PURPURA
     Dosage: 150 MG
     Route: 065

REACTIONS (4)
  - Disease recurrence [Unknown]
  - Therapeutic response decreased [Unknown]
  - Infection [Fatal]
  - Immune thrombocytopenic purpura [Unknown]
